FAERS Safety Report 5121276-1 (Version None)
Quarter: 2006Q4

REPORT INFORMATION
  Report Type: 
  Country: None (occurrence: None)
  Receive Date: 20061002
  Receipt Date: 20060921
  Transmission Date: 20070319
  Serious: No
  Sender: FDA-Public Use
  Company Number: 06H-163-0310421-00

PATIENT
  Sex: 0

DRUGS (2)
  1. BUPIVACAINE HCL [Suspect]
     Indication: PAIN
     Dosage: LOCAL INFILTRATION
     Dates: start: 20060802
  2. LACTATED RINGERS IRRIGATION, FLEXIBLE CONTAINER (LACTATED RINGERS IRRI [Suspect]
     Indication: DRUG USE FOR UNKNOWN INDICATION
     Dates: start: 20060802

REACTIONS (2)
  - ACINETOBACTER INFECTION [None]
  - ARTHRITIS INFECTIVE [None]
